FAERS Safety Report 25837342 (Version 3)
Quarter: 2025Q3

REPORT INFORMATION
  Report Type: Spontaneous
  Country: US (occurrence: US)
  Receive Date: 20250923
  Receipt Date: 20250926
  Transmission Date: 20251020
  Serious: Yes (Life-Threatening, Other)
  Sender: PFIZER
  Company Number: US-PFIZER INC-PV202500113820

PATIENT
  Age: 30 Year
  Sex: Male

DRUGS (8)
  1. DEXMEDETOMIDINE HYDROCHLORIDE [Suspect]
     Active Substance: DEXMEDETOMIDINE HYDROCHLORIDE
     Indication: Catatonia
  2. DEXMEDETOMIDINE HYDROCHLORIDE [Suspect]
     Active Substance: DEXMEDETOMIDINE HYDROCHLORIDE
     Indication: Mania
  3. LORAZEPAM [Suspect]
     Active Substance: LORAZEPAM
     Indication: Catatonia
     Route: 051
  4. LORAZEPAM [Suspect]
     Active Substance: LORAZEPAM
     Indication: Mania
     Dosage: 40 MG, DAILY
  5. MIDAZOLAM [Suspect]
     Active Substance: MIDAZOLAM
     Indication: Mania
  6. MIDAZOLAM [Suspect]
     Active Substance: MIDAZOLAM
     Indication: Catatonia
  7. VALPROATE [Concomitant]
     Active Substance: VALPROIC ACID
     Indication: Catatonia
  8. VALPROATE [Concomitant]
     Active Substance: VALPROIC ACID
     Indication: Mania

REACTIONS (2)
  - Drug ineffective for unapproved indication [Unknown]
  - Off label use [Unknown]
